FAERS Safety Report 6789069-7 (Version None)
Quarter: 2010Q2

REPORT INFORMATION
  Report Type: 
  Country: None (occurrence: None)
  Receive Date: 20100623
  Receipt Date: 20080623
  Transmission Date: 20101027
  Serious: Yes (Other)
  Sender: FDA-Public Use
  Company Number: US-PFIZER INC-2008052205

PATIENT
  Sex: Female

DRUGS (6)
  1. PROVERA [Suspect]
     Indication: HORMONE REPLACEMENT THERAPY
     Route: 048
     Dates: start: 19930831, end: 19960313
  2. PROVERA [Suspect]
     Route: 048
     Dates: start: 19960930, end: 19970930
  3. PREMARIN [Suspect]
     Indication: HORMONE REPLACEMENT THERAPY
     Dates: start: 19930831, end: 19960313
  4. PREMARIN [Suspect]
     Dates: start: 19960930, end: 19970930
  5. PREMPRO [Suspect]
     Indication: HORMONE REPLACEMENT THERAPY
     Dates: start: 19960313, end: 19960930
  6. PREMPRO [Suspect]
     Dates: start: 19970930, end: 20021025

REACTIONS (1)
  - BREAST CANCER FEMALE [None]
